FAERS Safety Report 9657846 (Version 1)
Quarter: 2013Q4

REPORT INFORMATION
  Report Type: Spontaneous
  Country: GB (occurrence: GB)
  Receive Date: 20131030
  Receipt Date: 20131030
  Transmission Date: 20140711
  Serious: Yes (Other)
  Sender: FDA-Public Use
  Company Number: CHNY2013GB002303

PATIENT
  Sex: Male

DRUGS (2)
  1. BOOTS ATHLETES FOOT 1% CREAM [Suspect]
     Dosage: UNK, UNK
     Route: 061
  2. CANESPRO [Suspect]
     Dosage: UNK, UNK

REACTIONS (4)
  - Inflammation [Unknown]
  - Pain of skin [Unknown]
  - Localised infection [Unknown]
  - Condition aggravated [Unknown]
